FAERS Safety Report 14942417 (Version 2)
Quarter: 2018Q3

REPORT INFORMATION
  Report Type: Spontaneous
  Country: CA (occurrence: CA)
  Receive Date: 20180528
  Receipt Date: 20180705
  Transmission Date: 20181010
  Serious: Yes (Other)
  Sender: FDA-Public Use
  Company Number: CA-ORION CORPORATION ORION PHARMA-TREX2018-1608

PATIENT
  Age: 42 Year
  Sex: Female

DRUGS (5)
  1. PLAQUENIL [Concomitant]
     Active Substance: HYDROXYCHLOROQUINE SULFATE
     Dosage: 400MG EVERY (Q)
     Route: 065
     Dates: start: 2013
  2. ARAVA [Concomitant]
     Active Substance: LEFLUNOMIDE
     Dosage: 20MG EVERY (Q)
     Route: 065
     Dates: start: 2013
  3. NAPROXEN. [Concomitant]
     Active Substance: NAPROXEN
     Route: 065
  4. PREDNISONE. [Concomitant]
     Active Substance: PREDNISONE
     Route: 065
  5. METHOTREXATE (TRADE NAME UNKNOWN) [Suspect]
     Active Substance: METHOTREXATE
     Indication: PRODUCT USED FOR UNKNOWN INDICATION
     Dosage: 20MG EVERY (Q)
     Route: 065
     Dates: start: 2013

REACTIONS (1)
  - Head injury [Unknown]
